FAERS Safety Report 25193632 (Version 2)
Quarter: 2025Q2

REPORT INFORMATION
  Report Type: Spontaneous
  Country: RU (occurrence: RU)
  Receive Date: 20250414
  Receipt Date: 20250417
  Transmission Date: 20250717
  Serious: Yes (Other)
  Sender: ELI LILLY AND COMPANY
  Company Number: RU-Merck Healthcare KGaA-2025016973

PATIENT
  Age: 76 Year
  Sex: Male

DRUGS (5)
  1. ERBITUX [Suspect]
     Active Substance: CETUXIMAB
     Indication: Colorectal cancer metastatic
     Dosage: 500 MG/M2, 2/M
     Route: 042
     Dates: start: 20230823
  2. LEUCOVORIN CALCIUM [Suspect]
     Active Substance: LEUCOVORIN CALCIUM
     Indication: Colorectal cancer metastatic
     Route: 042
     Dates: start: 20230823
  3. FLUOROURACIL [Suspect]
     Active Substance: FLUOROURACIL
     Indication: Colorectal cancer metastatic
     Route: 042
     Dates: start: 20230823
  4. FLUOROURACIL [Suspect]
     Active Substance: FLUOROURACIL
     Route: 042
  5. IRINOTECAN [Suspect]
     Active Substance: IRINOTECAN
     Indication: Colorectal cancer metastatic
     Route: 042
     Dates: start: 20230823

REACTIONS (2)
  - Polyneuropathy [Unknown]
  - Off label use [Unknown]
